FAERS Safety Report 20072532 (Version 2)
Quarter: 2025Q3

REPORT INFORMATION
  Report Type: Spontaneous
  Country: EU (occurrence: EU)
  Receive Date: 20211116
  Receipt Date: 20250709
  Transmission Date: 20251020
  Serious: Yes (Other)
  Sender: AUROBINDO
  Company Number: EU-Hikma Pharmaceuticals-PT-H14001-21-04586

PATIENT
  Age: 47 Year
  Sex: Male

DRUGS (7)
  1. FENTANYL [Suspect]
     Active Substance: FENTANYL
     Indication: Product used for unknown indication
     Route: 065
  2. LIDOCAINE [Suspect]
     Active Substance: LIDOCAINE
     Indication: Product used for unknown indication
     Route: 065
  3. MIDAZOLAM [Suspect]
     Active Substance: MIDAZOLAM
     Indication: Product used for unknown indication
     Route: 065
  4. ETOMIDATE [Suspect]
     Active Substance: ETOMIDATE
     Indication: Product used for unknown indication
     Route: 065
  5. ROCURONIUM [Suspect]
     Active Substance: ROCURONIUM BROMIDE
     Indication: Product used for unknown indication
     Route: 065
  6. PHENOXYBENZAMINE [Concomitant]
     Active Substance: PHENOXYBENZAMINE
     Indication: Product used for unknown indication
     Route: 065
  7. PHENTOLAMINE [Concomitant]
     Active Substance: PHENTOLAMINE
     Indication: Product used for unknown indication
     Route: 065

REACTIONS (4)
  - Phaeochromocytoma crisis [Recovered/Resolved]
  - Catecholamine crisis [Unknown]
  - Oxidative stress [Unknown]
  - Inflammation [Unknown]
